FAERS Safety Report 23634859 (Version 1)
Quarter: 2024Q1

REPORT INFORMATION
  Report Type: Spontaneous
  Country: US (occurrence: US)
  Receive Date: 20240315
  Receipt Date: 20240315
  Transmission Date: 20240410
  Serious: Yes (Other)
  Sender: FDA-Public Use
  Company Number: US-AstraZeneca-2024A054277

PATIENT
  Sex: Female

DRUGS (1)
  1. BUDESONIDE [Suspect]
     Active Substance: BUDESONIDE
     Dosage: ROA: RESPIRATORY (INHALATION)
     Route: 055

REACTIONS (3)
  - Device physical property issue [Unknown]
  - Oral discomfort [Unknown]
  - Lip swelling [Unknown]
